FAERS Safety Report 17009110 (Version 2)
Quarter: 2019Q4

REPORT INFORMATION
  Report Type: Report from Study
  Country: GB (occurrence: GB)
  Receive Date: 20191108
  Receipt Date: 20191114
  Transmission Date: 20200122
  Serious: Yes (Hospitalization)
  Sender: FDA-Public Use
  Company Number: GB-SAMSUNG BIOEPIS-SB-2019-32624

PATIENT
  Age: 55 Year
  Sex: Female

DRUGS (1)
  1. BENEPALI [Suspect]
     Active Substance: ETANERCEPT
     Indication: PSORIATIC ARTHROPATHY
     Route: 058

REACTIONS (6)
  - Sepsis [Unknown]
  - Injection site bruising [Unknown]
  - Psoriatic arthropathy [Unknown]
  - Wrong technique in product usage process [Unknown]
  - Muscle tightness [Unknown]
  - Pyrexia [Unknown]

NARRATIVE: CASE EVENT DATE: 20191023
